FAERS Safety Report 7122405-0 (Version None)
Quarter: 2010Q4

REPORT INFORMATION
  Report Type: 
  Country: None (occurrence: None)
  Receive Date: 20101124
  Receipt Date: 20101116
  Transmission Date: 20110411
  Serious: Yes (Hospitalization)
  Sender: FDA-Public Use
  Company Number: JP-NOVOPROD-318501

PATIENT
  Age: 51 Year
  Sex: Female
  Weight: 26 kg

DRUGS (2)
  1. NOVORAPID CHU PENFILL [Suspect]
     Indication: PANCREATOGENOUS DIABETES
     Dosage: 14 U, QD
     Route: 058
  2. LEVEMIR [Suspect]
     Indication: PANCREATOGENOUS DIABETES
     Dosage: 3 U, QD
     Route: 058

REACTIONS (2)
  - HYPOGLYCAEMIA [None]
  - INAPPROPRIATE ANTIDIURETIC HORMONE SECRETION [None]
